FAERS Safety Report 9349108 (Version 2)
Quarter: 2013Q3

REPORT INFORMATION
  Report Type: Spontaneous
  Country: AT (occurrence: AT)
  Receive Date: 20130614
  Receipt Date: 20130910
  Transmission Date: 20140515
  Serious: Yes (Hospitalization)
  Sender: FDA-Public Use
  Company Number: AT-ABBOTT-13P-009-1078365-00

PATIENT
  Sex: Female

DRUGS (9)
  1. HUMIRA [Suspect]
     Indication: PSORIATIC ARTHROPATHY
     Dates: start: 20120530, end: 201212
  2. HUMIRA [Suspect]
     Dates: start: 20130411, end: 20130508
  3. HUMIRA [Suspect]
     Dates: start: 20130712
  4. THYREX [Concomitant]
     Indication: PRODUCT USED FOR UNKNOWN INDICATION
     Dosage: 100
  5. DANCOR [Concomitant]
     Indication: PRODUCT USED FOR UNKNOWN INDICATION
     Dosage: 20
  6. DILTIAZEM [Concomitant]
     Indication: PRODUCT USED FOR UNKNOWN INDICATION
     Dosage: 90
  7. EFECTIN [Concomitant]
     Indication: PRODUCT USED FOR UNKNOWN INDICATION
  8. RENISTAD [Concomitant]
     Indication: PRODUCT USED FOR UNKNOWN INDICATION
  9. THROMBO ASS [Concomitant]
     Indication: PRODUCT USED FOR UNKNOWN INDICATION
     Dosage: 100

REACTIONS (4)
  - Hypothyroidism [Recovered/Resolved]
  - Thyroid neoplasm [Recovered/Resolved]
  - Drug ineffective [Not Recovered/Not Resolved]
  - Psoriasis [Not Recovered/Not Resolved]
